FAERS Safety Report 7512528-6 (Version None)
Quarter: 2011Q2

REPORT INFORMATION
  Report Type: 
  Country: None (occurrence: None)
  Receive Date: 20110525
  Receipt Date: 20110525
  Transmission Date: 20111010
  Serious: Yes (Life-Threatening)
  Sender: FDA-Public Use
  Company Number: None

PATIENT
  Sex: Male
  Weight: 97 kg

DRUGS (1)
  1. HURRICAINE SPRAY 20% BENZOCAINE BEUTLICH PHARMACEUTICALS [Suspect]
     Indication: ECHOCARDIOGRAM
     Dosage: SPRAY 047
     Route: 048
     Dates: start: 20110420

REACTIONS (3)
  - CHEST PAIN [None]
  - RESPIRATORY DISTRESS [None]
  - BLOOD METHAEMOGLOBIN PRESENT [None]
